FAERS Safety Report 6984345-7 (Version None)
Quarter: 2010Q3

REPORT INFORMATION
  Report Type: 
  Country: None (occurrence: None)
  Receive Date: 20100915
  Receipt Date: 20100909
  Transmission Date: 20110219
  Serious: Yes (Hospitalization, Other)
  Sender: FDA-Public Use
  Company Number: PHHO2009AU00693

PATIENT
  Sex: Male
  Weight: 79.75 kg

DRUGS (4)
  1. CERTICAN [Suspect]
     Indication: RENAL TRANSPLANT
     Dosage: 3 MG, DAILY
     Route: 048
     Dates: start: 20090101, end: 20090316
  2. CERTICAN [Suspect]
     Dosage: 0.5 MG/DAY
     Route: 048
     Dates: start: 20090201, end: 20090316
  3. NEORAL [Suspect]
     Indication: RENAL TRANSPLANT
  4. CLEXANE [Concomitant]
     Indication: ANTICOAGULANT THERAPY

REACTIONS (10)
  - BLOOD PRESSURE INCREASED [None]
  - DRUG LEVEL INCREASED [None]
  - FOCAL SEGMENTAL GLOMERULOSCLEROSIS [None]
  - HAEMATURIA [None]
  - HAEMORRHAGE URINARY TRACT [None]
  - POST PROCEDURAL COMPLICATION [None]
  - PROTEINURIA [None]
  - URETERIC OBSTRUCTION [None]
  - URINE OUTPUT DECREASED [None]
  - WEIGHT INCREASED [None]
